FAERS Safety Report 6774995-5 (Version None)
Quarter: 2010Q2

REPORT INFORMATION
  Report Type: 
  Country: None (occurrence: None)
  Receive Date: 20100617
  Receipt Date: 20100610
  Transmission Date: 20101027
  Serious: Yes (Death, Other)
  Sender: FDA-Public Use
  Company Number: A0859498A

PATIENT
  Age: 77 Year
  Sex: Female
  Weight: 51.9 kg

DRUGS (14)
  1. PROMACTA [Suspect]
     Indication: IDIOPATHIC THROMBOCYTOPENIC PURPURA
     Dosage: 50MG PER DAY
     Route: 048
     Dates: start: 20091130, end: 20100118
  2. RITUXIMAB [Concomitant]
     Indication: IDIOPATHIC THROMBOCYTOPENIC PURPURA
     Dates: start: 20091006
  3. ACYCLOVIR [Concomitant]
     Dosage: 200MG PER DAY
  4. NORVASC [Concomitant]
  5. NEORAL [Concomitant]
  6. MEGACE [Concomitant]
     Dosage: 400MG PER DAY
  7. PRILOSEC [Concomitant]
     Dosage: 20MG PER DAY
  8. SALAGEN [Concomitant]
     Dosage: 5MG THREE TIMES PER DAY
  9. K-DUR [Concomitant]
     Dosage: 20MEQ AT NIGHT
  10. SODIUM BICARBONATE [Concomitant]
     Dosage: 1950MG TWICE PER DAY
  11. VALCYTE [Concomitant]
     Dosage: 450MG PER DAY
  12. IMODIUM [Concomitant]
  13. ZOFRAN [Concomitant]
     Dosage: 4MG AS REQUIRED
  14. DAPTOMYCIN [Concomitant]

REACTIONS (3)
  - DEATH [None]
  - DRUG INEFFECTIVE [None]
  - MOUTH HAEMORRHAGE [None]
